FAERS Safety Report 15311826 (Version 2)
Quarter: 2018Q4

REPORT INFORMATION
  Report Type: Spontaneous
  Country: US (occurrence: US)
  Receive Date: 20180823
  Receipt Date: 20181030
  Transmission Date: 20190204
  Serious: Yes (Disabling, Other)
  Sender: FDA-Public Use
  Company Number: US-MIST-TIR-2018-0847

PATIENT
  Age: 82 Year
  Sex: Female

DRUGS (9)
  1. TIROSINT [Suspect]
     Active Substance: LEVOTHYROXINE SODIUM
     Indication: PRODUCT USED FOR UNKNOWN INDICATION
     Dosage: 13MCG THREE TIMES DAILY
     Route: 048
  2. HYDROCHLOROTHIAZIDE (HCTZ) [Concomitant]
     Active Substance: HYDROCHLOROTHIAZIDE
     Indication: PRODUCT USED FOR UNKNOWN INDICATION
  3. TIROSINT [Suspect]
     Active Substance: LEVOTHYROXINE SODIUM
     Dosage: 13MCG THREE TIMES DAILY
     Route: 048
     Dates: start: 201807
  4. UNSPECIFIED VITAMINS [Concomitant]
     Active Substance: VITAMINS
     Indication: PRODUCT USED FOR UNKNOWN INDICATION
  5. TIROSINT [Suspect]
     Active Substance: LEVOTHYROXINE SODIUM
     Dosage: 13MCG THREE TIMES DAILY
     Route: 048
     Dates: start: 20180810, end: 20180810
  6. THERATEARS [Concomitant]
     Active Substance: CARBOXYMETHYLCELLULOSE SODIUM
     Indication: PRODUCT USED FOR UNKNOWN INDICATION
  7. TIROSINT [Suspect]
     Active Substance: LEVOTHYROXINE SODIUM
     Dosage: 13MCG THREE TIMES DAILY
     Route: 048
     Dates: start: 20180810, end: 20180810
  8. TIROSINT [Suspect]
     Active Substance: LEVOTHYROXINE SODIUM
     Dosage: 13MCG THREE TIMES DAILY
     Route: 048
     Dates: start: 20180810
  9. ESTRACE [Concomitant]
     Active Substance: ESTRADIOL
     Indication: PRODUCT USED FOR UNKNOWN INDICATION

REACTIONS (10)
  - Pelvic fracture [Unknown]
  - Impaired healing [Not Recovered/Not Resolved]
  - Malaise [Unknown]
  - Product colour issue [Unknown]
  - Pruritus [Unknown]
  - Chest pain [Unknown]
  - Fall [Unknown]
  - Hyperhidrosis [Unknown]
  - Product taste abnormal [Unknown]
  - Injury [Unknown]

NARRATIVE: CASE EVENT DATE: 20170619
